FAERS Safety Report 4350524-0 (Version None)
Quarter: 2004Q2

REPORT INFORMATION
  Report Type: 
  Country: None (occurrence: None)
  Receive Date: 20040429
  Receipt Date: 20040429
  Transmission Date: 20050107
  Serious: Yes (Other)
  Sender: FDA-Public Use
  Company Number: None

PATIENT
  Age: 83 Year
  Sex: Female

DRUGS (11)
  1. NAMENDA [Suspect]
     Indication: DEMENTIA
     Dates: start: 20040115, end: 20040205
  2. QUININE [Concomitant]
  3. PEPCID [Concomitant]
  4. PROVIGIL [Concomitant]
  5. RISPERDAL [Concomitant]
  6. ASPIRIN [Concomitant]
  7. MULTIVIT WITH FR [Concomitant]
  8. LISINOPRIL [Concomitant]
  9. WELLBUTRIN [Concomitant]
  10. ARICEPT [Concomitant]
  11. PRAVACHOL [Concomitant]

REACTIONS (2)
  - CHEST PAIN [None]
  - VASCULAR OCCLUSION [None]
